FAERS Safety Report 4416056-6 (Version None)
Quarter: 2004Q3

REPORT INFORMATION
  Report Type: 
  Country: None (occurrence: None)
  Receive Date: 20040730
  Receipt Date: 20040719
  Transmission Date: 20050211
  Serious: Yes (Hospitalization)
  Sender: FDA-Public Use
  Company Number: 2004215032US

PATIENT
  Age: 36 Year
  Sex: Female
  Weight: 145.6 kg

DRUGS (6)
  1. ELLENCE [Suspect]
     Indication: BREAST CANCER
     Dosage: 245 MG, CYCLIC, IV
     Route: 042
     Dates: start: 20040408, end: 20040520
  2. FLUOROURACIL [Suspect]
     Indication: BREAST CANCER
     Dosage: 1225 MG, CYCLIC, IV
     Route: 042
     Dates: start: 20040408, end: 20040520
  3. CYCLOPHOSPHAMIDE [Suspect]
     Indication: BREAST CANCER
     Dosage: 1225 MG, CYCLIC, IV
     Route: 042
     Dates: start: 20040408, end: 20040520
  4. PROCRIT (ERYTHROPOIETIN) [Concomitant]
  5. ZOFRAN [Concomitant]
  6. ANTIVERT (MECLOZINE HYDROCHLORIDE) [Concomitant]

REACTIONS (11)
  - ANAEMIA [None]
  - BLOOD PRESSURE INCREASED [None]
  - CARDIOVASCULAR FUNCTION TEST ABNORMAL [None]
  - DEHYDRATION [None]
  - DIZZINESS [None]
  - IRON DEFICIENCY [None]
  - LOSS OF CONSCIOUSNESS [None]
  - NAUSEA [None]
  - SYNCOPE [None]
  - TREATMENT NONCOMPLIANCE [None]
  - VOMITING [None]
